FAERS Safety Report 11866619 (Version 11)
Quarter: 2021Q2

REPORT INFORMATION
  Report Type: Other
  Country: CA (occurrence: CA)
  Receive Date: 20151224
  Receipt Date: 20210422
  Transmission Date: 20210716
  Serious: Yes (Death, Hospitalization, Other)
  Sender: FDA-Public Use
  Company Number: CA-ROCHE-1681625

PATIENT
  Age: 61 Year
  Sex: Male

DRUGS (13)
  1. XOLAIR [Suspect]
     Active Substance: OMALIZUMAB
     Route: 058
     Dates: start: 20170117
  2. XOLAIR [Suspect]
     Active Substance: OMALIZUMAB
     Route: 058
     Dates: start: 20170411
  3. XOLAIR [Suspect]
     Active Substance: OMALIZUMAB
     Route: 058
     Dates: start: 20170829
  4. XOLAIR [Suspect]
     Active Substance: OMALIZUMAB
     Indication: ASTHMA
     Route: 058
     Dates: start: 20140619
  5. XOLAIR [Suspect]
     Active Substance: OMALIZUMAB
     Route: 058
     Dates: start: 20161118
  6. RAMIPRIL. [Concomitant]
     Active Substance: RAMIPRIL
     Indication: PRODUCT USED FOR UNKNOWN INDICATION
     Route: 065
  7. ADALAT [Concomitant]
     Active Substance: NIFEDIPINE
     Indication: PRODUCT USED FOR UNKNOWN INDICATION
     Route: 065
  8. XOLAIR [Suspect]
     Active Substance: OMALIZUMAB
     Route: 058
     Dates: start: 20161222
  9. INSULIN [Concomitant]
     Active Substance: INSULIN NOS
     Indication: PRODUCT USED FOR UNKNOWN INDICATION
     Route: 065
  10. DIABETA (CANADA) [Concomitant]
     Indication: PRODUCT USED FOR UNKNOWN INDICATION
     Dosage: 20 MG, QD
     Route: 065
  11. XOLAIR [Suspect]
     Active Substance: OMALIZUMAB
     Route: 058
     Dates: start: 20170314
  12. XOLAIR [Suspect]
     Active Substance: OMALIZUMAB
     Route: 058
     Dates: start: 20170801
  13. XOLAIR [Suspect]
     Active Substance: OMALIZUMAB
     Route: 058
     Dates: start: 20180213

REACTIONS (24)
  - Endotracheal intubation complication [Fatal]
  - Hordeolum [Recovered/Resolved]
  - Dyspnoea exertional [Unknown]
  - Condition aggravated [Unknown]
  - Aspiration [Unknown]
  - Swelling of eyelid [Not Recovered/Not Resolved]
  - Oropharyngeal pain [Unknown]
  - Type 2 diabetes mellitus [Unknown]
  - Cardiac failure [Fatal]
  - Vomiting [Recovered/Resolved]
  - Hypophagia [Unknown]
  - Aphonia [Unknown]
  - Cough [Unknown]
  - Increased viscosity of bronchial secretion [Unknown]
  - Productive cough [Unknown]
  - Drug ineffective [Unknown]
  - Diplopia [Recovering/Resolving]
  - Cerebrovascular accident [Fatal]
  - Hypertension [Recovering/Resolving]
  - Sputum abnormal [Unknown]
  - Vision blurred [Recovering/Resolving]
  - Increased upper airway secretion [Fatal]
  - Transient ischaemic attack [Recovering/Resolving]
  - Dyspnoea [Unknown]

NARRATIVE: CASE EVENT DATE: 2015
